FAERS Safety Report 26060328 (Version 1)
Quarter: 2025Q4

REPORT INFORMATION
  Report Type: Spontaneous
  Country: EU (occurrence: EU)
  Receive Date: 20251118
  Receipt Date: 20251118
  Transmission Date: 20260117
  Serious: Yes (Hospitalization)
  Sender: MYLAN
  Company Number: None

PATIENT
  Age: 89 Year
  Sex: Female

DRUGS (8)
  1. PREGABALIN [Interacting]
     Active Substance: PREGABALIN
     Indication: Product used for unknown indication
     Dosage: 75 MILLIGRAM, QD (24 HOURS)
     Dates: start: 20180213
  2. PREGABALIN [Interacting]
     Active Substance: PREGABALIN
     Dosage: 75 MILLIGRAM, QD (24 HOURS)
     Route: 048
     Dates: start: 20180213
  3. PREGABALIN [Interacting]
     Active Substance: PREGABALIN
     Dosage: 75 MILLIGRAM, QD (24 HOURS)
     Route: 048
     Dates: start: 20180213
  4. PREGABALIN [Interacting]
     Active Substance: PREGABALIN
     Dosage: 75 MILLIGRAM, QD (24 HOURS)
     Dates: start: 20180213
  5. HYDROCHLOROTHIAZIDE\LISINOPRIL [Interacting]
     Active Substance: HYDROCHLOROTHIAZIDE\LISINOPRIL
     Indication: Hypertension
     Dosage: 1 DOSAGE FORM, QD (24 HR, 28 TABLETS)
     Dates: start: 20231006, end: 20250808
  6. HYDROCHLOROTHIAZIDE\LISINOPRIL [Interacting]
     Active Substance: HYDROCHLOROTHIAZIDE\LISINOPRIL
     Dosage: 1 DOSAGE FORM, QD (24 HR, 28 TABLETS)
     Route: 048
     Dates: start: 20231006, end: 20250808
  7. HYDROCHLOROTHIAZIDE\LISINOPRIL [Interacting]
     Active Substance: HYDROCHLOROTHIAZIDE\LISINOPRIL
     Dosage: 1 DOSAGE FORM, QD (24 HR, 28 TABLETS)
     Route: 048
     Dates: start: 20231006, end: 20250808
  8. HYDROCHLOROTHIAZIDE\LISINOPRIL [Interacting]
     Active Substance: HYDROCHLOROTHIAZIDE\LISINOPRIL
     Dosage: 1 DOSAGE FORM, QD (24 HR, 28 TABLETS)
     Dates: start: 20231006, end: 20250808

REACTIONS (1)
  - Hyponatraemia [Recovered/Resolved]

NARRATIVE: CASE EVENT DATE: 20250804
